FAERS Safety Report 22129528 (Version 2)
Quarter: 2023Q2

REPORT INFORMATION
  Report Type: Spontaneous
  Country: CN (occurrence: None)
  Receive Date: 20230323
  Receipt Date: 20230407
  Transmission Date: 20230721
  Serious: Yes (Other)
  Sender: FDA-Public Use
  Company Number: CN-Unichem Pharmaceuticals (USA) Inc-UCM202303-000319

PATIENT
  Age: 54 Year
  Sex: Female
  Weight: 68 kg

DRUGS (8)
  1. AMLODIPINE [Suspect]
     Active Substance: AMLODIPINE BESYLATE
     Indication: Hypertension
  2. BISOPROLOL FUMARATE [Concomitant]
     Active Substance: BISOPROLOL FUMARATE
     Indication: Hypertension
  3. SUFENTANIL [Concomitant]
     Active Substance: SUFENTANIL
     Indication: Induction of anaesthesia
     Dosage: 1.5UG/KG
  4. PROPOFOL [Concomitant]
     Active Substance: PROPOFOL
     Indication: Induction of anaesthesia
  5. PROPOFOL [Concomitant]
     Active Substance: PROPOFOL
     Dosage: 4-6MG/KG/H
     Route: 042
  6. VECURONIUM [Concomitant]
     Active Substance: VECURONIUM BROMIDE
     Indication: Induction of anaesthesia
  7. Remifentynl [Concomitant]
     Indication: Induction of anaesthesia
     Dosage: 0.1-0.2UG/KG/MIN
     Route: 042
  8. Remifentynl [Concomitant]
     Dosage: 0.2 DOWN TO 0.15UG/KG/MIN (REDUCED)
     Route: 042

REACTIONS (2)
  - Hypoxia [Recovered/Resolved]
  - Bradycardia [Recovered/Resolved]
